FAERS Safety Report 7213387-1 (Version None)
Quarter: 2010Q4

REPORT INFORMATION
  Report Type: 
  Country: None (occurrence: None)
  Receive Date: 20101126
  Receipt Date: 20091015
  Transmission Date: 20110411
  Serious: Yes (Other)
  Sender: FDA-Public Use
  Company Number: WAES 0712USA06278

PATIENT
  Age: 52 Year
  Sex: Female
  Weight: 90.7194 kg

DRUGS (2)
  1. FOSAMAX [Suspect]
     Indication: OSTEOPENIA
     Dosage: 70 MG/WKY/PO
     Route: 048
     Dates: start: 20040101, end: 20060619
  2. THERAPY UNSPECIFIED) [Concomitant]

REACTIONS (22)
  - ABSCESS ORAL [None]
  - ANXIETY [None]
  - BONE DENSITY DECREASED [None]
  - CONJUNCTIVITIS ALLERGIC [None]
  - GINGIVAL DISORDER [None]
  - HYPERLIPIDAEMIA [None]
  - HYPERTENSION [None]
  - IMPAIRED HEALING [None]
  - INSOMNIA [None]
  - LOOSE TOOTH [None]
  - OEDEMA PERIPHERAL [None]
  - ORAL DISORDER [None]
  - OSTEONECROSIS [None]
  - PHARYNGITIS STREPTOCOCCAL [None]
  - RHINITIS [None]
  - SALIVARY GLAND DISORDER [None]
  - SINUSITIS [None]
  - TOOTH DISORDER [None]
  - TOOTH FRACTURE [None]
  - TOOTHACHE [None]
  - UPPER RESPIRATORY TRACT INFECTION [None]
  - WOUND DEHISCENCE [None]
